FAERS Safety Report 8382992-1 (Version None)
Quarter: 2012Q2

REPORT INFORMATION
  Report Type: 
  Country: None (occurrence: None)
  Receive Date: 20120524
  Receipt Date: 20120521
  Transmission Date: 20120825
  Serious: Yes (Other)
  Sender: FDA-Public Use
  Company Number: PHHY2012DE030734

PATIENT
  Sex: Female
  Weight: 62 kg

DRUGS (3)
  1. TEGRETOL-XR [Suspect]
     Indication: EPILEPSY
     Dosage: 2000 MG, DAILY
     Route: 048
     Dates: start: 19921101
  2. TEGRETOL-XR [Suspect]
     Dosage: 300 MG, DAILY
     Route: 048
     Dates: start: 20120101
  3. KEPPRA [Concomitant]
     Dosage: VARIABLE DOSES BETWEEN 250, 500 AND 1000 MG
     Dates: start: 20040804, end: 20100308

REACTIONS (12)
  - NEPHROLITHIASIS [None]
  - TINNITUS [None]
  - MIDDLE EAR EFFUSION [None]
  - BONE DENSITY DECREASED [None]
  - HEARING IMPAIRED [None]
  - LYMPHADENOPATHY [None]
  - MANIA [None]
  - MELANOCYTIC NAEVUS [None]
  - VITAMIN B12 DECREASED [None]
  - SINUSITIS [None]
  - DEPRESSION [None]
  - PARAESTHESIA [None]
